FAERS Safety Report 7378957-9 (Version None)
Quarter: 2011Q1

REPORT INFORMATION
  Report Type: 
  Country: None (occurrence: None)
  Receive Date: 20110328
  Receipt Date: 20110324
  Transmission Date: 20110831
  Serious: Yes (Death, Other)
  Sender: FDA-Public Use
  Company Number: PHHY2011GB23986

PATIENT
  Age: 89 Year
  Sex: Female

DRUGS (14)
  1. ROPINIROLE [Suspect]
     Indication: PARKINSON'S DISEASE
     Dosage: 3 MG, QD
     Route: 048
  2. CARBIMAZOLE [Concomitant]
     Dosage: UNK
     Route: 048
  3. IRON [Concomitant]
     Route: 048
  4. BISOPROLOL [Concomitant]
     Dosage: 5 MG, QD
  5. ROPINIROLE [Suspect]
     Dosage: 6 MG, QD
  6. LACTULOSE [Concomitant]
     Dosage: 20 ML, QD
     Route: 048
  7. ASPIRIN [Concomitant]
     Dosage: 75 MG, QD
  8. DIGOXIN [Concomitant]
     Dosage: 62.5 UG, QD
     Route: 048
  9. FUROSEMIDE [Concomitant]
     Dosage: UNK
  10. LEVODOPA [Concomitant]
     Indication: PARKINSON'S DISEASE
     Dosage: UNK
  11. RISPERIDONE [Suspect]
     Dosage: UNK
     Route: 048
  12. FORTISIP [Concomitant]
     Dosage: UNK
     Route: 048
  13. SINEMET [Concomitant]
     Dosage: 250 UG, QD
     Route: 048
  14. CARBIDOPA [Concomitant]
     Indication: PARKINSON'S DISEASE
     Dosage: UNK

REACTIONS (2)
  - DEATH [None]
  - WRONG DRUG ADMINISTERED [None]
